FAERS Safety Report 11374403 (Version 2)
Quarter: 2015Q3

REPORT INFORMATION
  Report Type: Spontaneous
  Country: US (occurrence: US)
  Receive Date: 20150813
  Receipt Date: 20150904
  Transmission Date: 20151125
  Serious: Yes (Death, Hospitalization)
  Sender: FDA-Public Use
  Company Number: US-ROCHE-1620961

PATIENT
  Age: 84 Year
  Sex: Male
  Weight: 71.73 kg

DRUGS (1)
  1. ESBRIET [Suspect]
     Active Substance: PIRFENIDONE
     Indication: IDIOPATHIC PULMONARY FIBROSIS
     Dosage: 3 CAPSULE THRICE A DAY
     Route: 048
     Dates: start: 20150305

REACTIONS (3)
  - Arrhythmia [Fatal]
  - Myocardial infarction [Fatal]
  - Femoral neck fracture [Fatal]

NARRATIVE: CASE EVENT DATE: 20150805
